FAERS Safety Report 10340035 (Version 4)
Quarter: 2015Q1

REPORT INFORMATION
  Report Type: Report from Study
  Country: US (occurrence: US)
  Receive Date: 20140724
  Receipt Date: 20150109
  Transmission Date: 20150720
  Serious: Yes (Other)
  Sender: FDA-Public Use
  Company Number: US-SA-2014SA035608

PATIENT
  Age: 42 Year
  Sex: Female
  Weight: 48 kg

DRUGS (9)
  1. AUBAGIO [Suspect]
     Active Substance: TERIFLUNOMIDE
     Indication: MULTIPLE SCLEROSIS
     Route: 048
     Dates: end: 201403
  2. AUBAGIO [Suspect]
     Active Substance: TERIFLUNOMIDE
     Indication: MULTIPLE SCLEROSIS
     Route: 048
     Dates: start: 20140211
  3. VITAMIN D/CALCIUM [Concomitant]
     Indication: BONE DISORDER
     Dates: start: 2014
  4. WELLBUTRIN [Concomitant]
     Active Substance: BUPROPION HYDROCHLORIDE
  5. AUBAGIO [Suspect]
     Active Substance: TERIFLUNOMIDE
     Indication: MULTIPLE SCLEROSIS
     Route: 048
     Dates: start: 201403, end: 20140626
  6. FISH OIL [Concomitant]
     Active Substance: FISH OIL
     Dates: start: 2013
  7. HYDROXYZINE [Concomitant]
     Active Substance: HYDROXYZINE\HYDROXYZINE HYDROCHLORIDE
  8. VITAMIN B12 [Concomitant]
     Active Substance: CYANOCOBALAMIN
     Dates: start: 2013
  9. VENTOLINE [Concomitant]
     Active Substance: ALBUTEROL
     Indication: ASTHMA

REACTIONS (6)
  - Hepatic enzyme increased [Recovered/Resolved]
  - Drug dose omission [Unknown]
  - Diarrhoea [Unknown]
  - Hepatic function abnormal [Unknown]
  - Depression [Unknown]
  - Alopecia [Unknown]

NARRATIVE: CASE EVENT DATE: 201402
